FAERS Safety Report 8507381-8 (Version None)
Quarter: 2012Q3

REPORT INFORMATION
  Report Type: 
  Country: None (occurrence: None)
  Receive Date: 20120712
  Receipt Date: 20120706
  Transmission Date: 20120928
  Serious: Yes (Life-Threatening)
  Sender: FDA-Public Use
  Company Number: DE-ROCHE-772492

PATIENT
  Sex: Male
  Weight: 73.5 kg

DRUGS (8)
  1. OXALIPLATIN [Suspect]
     Indication: COLORECTAL CANCER
     Dosage: LAST DOSE PRIOR TO SAE: 18 APRIL 2011
     Route: 042
  2. XELODA [Suspect]
     Dates: start: 20110419
  3. DEXAMETHASONE SODIUM POSPHATE [Concomitant]
     Indication: VOMITING
     Dosage: FREQUENCY: 1 T DAILY
     Route: 042
     Dates: start: 20110418, end: 20110418
  4. GRANISETRON [Concomitant]
     Indication: VOMITING
     Dosage: FREQUENCY: ON DEMAND
     Route: 048
     Dates: start: 20110418, end: 20110418
  5. NOVALGIN [Concomitant]
     Indication: PAIN
     Dosage: FREQUENCY: 2 X 1 TABLET
     Route: 048
  6. XELODA [Suspect]
     Dosage: DATE OF LST DOSE PRIOR TO SAE : 22/MAY/2011
     Dates: start: 20110509
  7. XELODA [Suspect]
     Indication: COLON CANCER
     Dosage: LAST DOSE PRIOR TO SAE :
     Route: 048
     Dates: start: 20101202
  8. HEPARIN [Concomitant]
     Indication: ATRIAL FIBRILLATION
     Dosage: DRUG NAME REPORTED AS: UNFRACTIONATED HEPARIN
     Route: 058

REACTIONS (1)
  - ALLERGIC OEDEMA [None]
